FAERS Safety Report 4480319-9 (Version None)
Quarter: 2004Q3

REPORT INFORMATION
  Report Type: 
  Country: None (occurrence: None)
  Receive Date: 20040923
  Receipt Date: 20040811
  Transmission Date: 20050211
  Serious: No
  Sender: FDA-Public Use
  Company Number: USA040463925

PATIENT
  Age: 77 Year
  Sex: Female
  Weight: 82 kg

DRUGS (11)
  1. FORTEO [Suspect]
     Indication: OSTEOPOROSIS
     Dosage: 20 UG/1 DAY
     Dates: start: 20040331
  2. VITAMIN D [Concomitant]
  3. TIAZAC(DILTIAZEM) [Concomitant]
  4. GLUCOVANCE [Concomitant]
  5. NEURONTIN [Concomitant]
  6. PAXIL [Concomitant]
  7. BABY ASPIRING (ACETYLSALICYLIC ACID) [Concomitant]
  8. AMBIEN [Concomitant]
  9. LORAZEPAM [Concomitant]
  10. CALCIUM [Concomitant]
  11. DARVOCET-N 100 [Concomitant]

REACTIONS (5)
  - BLOOD PRESSURE INCREASED [None]
  - INJECTION SITE ERYTHEMA [None]
  - INJECTION SITE HAEMORRHAGE [None]
  - MEDICATION ERROR [None]
  - OVERDOSE [None]
